FAERS Safety Report 13899334 (Version 1)
Quarter: 2017Q3

REPORT INFORMATION
  Report Type: Spontaneous
  Country: US (occurrence: US)
  Receive Date: 20170823
  Receipt Date: 20170823
  Transmission Date: 20171127
  Serious: No
  Sender: FDA-Public Use
  Company Number: None

PATIENT
  Sex: Male
  Weight: 15.3 kg

DRUGS (3)
  1. POLYETHYLENE GLYCOL 3350, USP POWDER FOR ORAL SOLUTION [Suspect]
     Active Substance: POLYETHYLENE GLYCOL 3350
     Indication: CONSTIPATION
     Route: 048
     Dates: start: 20170816, end: 20170819
  2. MELATONIN [Concomitant]
     Active Substance: MELATONIN
  3. TRIENZA [Concomitant]

REACTIONS (3)
  - Insomnia [None]
  - Aggression [None]
  - Pain [None]

NARRATIVE: CASE EVENT DATE: 20170819
